FAERS Safety Report 8986093 (Version 1)
Quarter: 2012Q4

REPORT INFORMATION
  Report Type: Spontaneous
  Country: US (occurrence: None)
  Receive Date: 20121219
  Receipt Date: 20121219
  Transmission Date: 20130627
  Serious: No
  Sender: FDA-Public Use
  Company Number: None

PATIENT
  Sex: Female
  Weight: 72.58 kg

DRUGS (1)
  1. BUPROPION HCL XL [Suspect]
     Indication: DEPRESSION

REACTIONS (2)
  - Product substitution issue [None]
  - Drug ineffective [None]
